FAERS Safety Report 4905876-7 (Version None)
Quarter: 2006Q1

REPORT INFORMATION
  Report Type: 
  Country: None (occurrence: None)
  Receive Date: 20060203
  Receipt Date: 20060124
  Transmission Date: 20060701
  Serious: Yes (Life-Threatening, Hospitalization, Other)
  Sender: FDA-Public Use
  Company Number: HQWYE524426JAN06

PATIENT
  Age: 35 Year
  Sex: Female

DRUGS (1)
  1. MYLOTARG [Suspect]
     Indication: ACUTE MYELOID LEUKAEMIA
     Dosage: 14 MG 1X PER 1 DAY, INTRAVENOUS
     Route: 042
     Dates: start: 20060110, end: 20060110

REACTIONS (5)
  - CATHETER SITE ERYTHEMA [None]
  - FEBRILE NEUTROPENIA [None]
  - HYPOTENSION [None]
  - PNEUMONIA [None]
  - STAPHYLOCOCCAL SEPSIS [None]
